FAERS Safety Report 4558201-8 (Version None)
Quarter: 2005Q1

REPORT INFORMATION
  Report Type: 
  Country: None (occurrence: None)
  Receive Date: 20050103
  Receipt Date: 20041026
  Transmission Date: 20050727
  Serious: Yes (Other)
  Sender: FDA-Public Use
  Company Number: 2004UW22226

PATIENT
  Sex: Female

DRUGS (9)
  1. CRESTOR [Suspect]
     Dosage: 10 MG HS PO
     Route: 048
     Dates: start: 20041001
  2. PAXIL [Concomitant]
  3. DETROL [Concomitant]
  4. TRAZODONE HCL [Concomitant]
  5. VICON FORTE [Concomitant]
  6. OMEGA [Concomitant]
  7. IBUPROFEN [Concomitant]
  8. NEXIUM [Concomitant]
  9. VITAMIN E [Concomitant]

REACTIONS (2)
  - HYPERSOMNIA [None]
  - LETHARGY [None]
